FAERS Safety Report 18964254 (Version 1)
Quarter: 2021Q1

REPORT INFORMATION
  Report Type: Spontaneous
  Country: US (occurrence: US)
  Receive Date: 20210303
  Receipt Date: 20210303
  Transmission Date: 20210420
  Serious: No
  Sender: FDA-Public Use
  Company Number: US-AMNEAL PHARMACEUTICALS-2020-AMRX-02530

PATIENT
  Age: 43 Year
  Sex: Male

DRUGS (2)
  1. RYTARY [Suspect]
     Active Substance: CARBIDOPA\LEVODOPA
     Indication: PARKINSON^S DISEASE
     Dosage: 48.75/195MG 2 CAPSULES, QID
     Route: 048
     Dates: start: 20200702, end: 20200817
  2. RYTARY [Suspect]
     Active Substance: CARBIDOPA\LEVODOPA
     Dosage: 61.25/245MG 1 CAPSULES, QID
     Route: 048
     Dates: start: 20200702, end: 20200817

REACTIONS (3)
  - Heart rate increased [Unknown]
  - Prescribed overdose [Unknown]
  - Chest pain [Unknown]

NARRATIVE: CASE EVENT DATE: 2020
